FAERS Safety Report 12368541 (Version 3)
Quarter: 2016Q3

REPORT INFORMATION
  Report Type: Spontaneous
  Country: BR (occurrence: BR)
  Receive Date: 20160513
  Receipt Date: 20160701
  Transmission Date: 20161109
  Serious: Yes (Other)
  Sender: FDA-Public Use
  Company Number: BR-GILEAD-2015-0185583

PATIENT
  Age: 52 Year
  Sex: Female

DRUGS (1)
  1. AMBRISENTAN [Suspect]
     Active Substance: AMBRISENTAN
     Indication: PULMONARY ARTERIAL HYPERTENSION
     Dosage: 1 TABLET, QD
     Route: 048
     Dates: start: 20150928, end: 20151007

REACTIONS (13)
  - Rash [Recovered/Resolved]
  - Abdominal distension [Recovered/Resolved]
  - Wheezing [Unknown]
  - Dyspnoea [Recovered/Resolved]
  - Fatigue [Recovered/Resolved]
  - Anaphylactic reaction [Recovered/Resolved]
  - Generalised oedema [Recovered/Resolved]
  - Hypersensitivity [Recovered/Resolved]
  - Laryngeal oedema [Recovered/Resolved]
  - Headache [Recovered/Resolved]
  - Oral mucosal eruption [Recovered/Resolved]
  - Blood pressure increased [Recovered/Resolved]
  - Lip oedema [Recovered/Resolved]
